FAERS Safety Report 7773351-0 (Version None)
Quarter: 2011Q3

REPORT INFORMATION
  Report Type: 
  Country: None (occurrence: None)
  Receive Date: 20110922
  Receipt Date: 20110914
  Transmission Date: 20111222
  Serious: Yes (Hospitalization, Other)
  Sender: FDA-Public Use
  Company Number: US-ASTRAZENECA-2010SE29081

PATIENT
  Sex: Male

DRUGS (12)
  1. CALCIUM CARBONATE [Concomitant]
  2. POTASSIUM [Concomitant]
  3. LEVOTHYROXINE SODIUM [Concomitant]
  4. CRESTOR [Suspect]
     Indication: HYPERLIPIDAEMIA
     Route: 048
  5. ASCORBIC ACID [Concomitant]
     Dosage: EVERY MORNING
     Route: 048
  6. ZANTAC [Concomitant]
  7. NEXIUM [Suspect]
     Route: 048
  8. ECOTRIN LOW STRENGTH [Concomitant]
     Route: 048
  9. PLAVIX [Concomitant]
     Route: 048
  10. CARVEDILOL [Concomitant]
     Route: 048
  11. BENICAR [Concomitant]
     Route: 048
  12. LOSARTAN POTASSIUM [Concomitant]
     Route: 048

REACTIONS (12)
  - VOMITING [None]
  - PROSTATE CANCER [None]
  - MYOCARDIAL INFARCTION [None]
  - HYPOTHYROIDISM [None]
  - PHARYNGEAL MASS [None]
  - CHEST PAIN [None]
  - HYPERTENSION [None]
  - ARTERIOSCLEROSIS CORONARY ARTERY [None]
  - NAUSEA [None]
  - HYPERLIPIDAEMIA [None]
  - ANGINA PECTORIS [None]
  - TOOTH DISORDER [None]
